FAERS Safety Report 4498932-1 (Version None)
Quarter: 2004Q4

REPORT INFORMATION
  Report Type: 
  Country: None (occurrence: None)
  Receive Date: 20041111
  Receipt Date: 20041101
  Transmission Date: 20050328
  Serious: Yes (Hospitalization)
  Sender: FDA-Public Use
  Company Number: US-ABBOTT-04P-163-0279479-00

PATIENT
  Sex: Female

DRUGS (2)
  1. SYNTHROID 25 MCG [Suspect]
     Indication: HYPOTHYROIDISM
     Route: 048
     Dates: start: 19900928, end: 19971101
  2. MULTI-VITAMINS [Concomitant]
     Indication: VITAMIN SUPPLEMENTATION

REACTIONS (4)
  - BLOOD CHOLESTEROL INCREASED [None]
  - CHRONIC FATIGUE SYNDROME [None]
  - NIGHTMARE [None]
  - RAYNAUD'S PHENOMENON [None]
